FAERS Safety Report 6073323-0 (Version None)
Quarter: 2009Q1

REPORT INFORMATION
  Report Type: 
  Country: None (occurrence: None)
  Receive Date: 20090211
  Receipt Date: 20090203
  Transmission Date: 20090719
  Serious: Yes (Other)
  Sender: FDA-Public Use
  Company Number: PHHY2009BR03920

PATIENT
  Sex: Female
  Weight: 68 kg

DRUGS (1)
  1. FORASEQ [Suspect]
     Indication: ASTHMA
     Dosage: 1 CAPSULE IN THE MORNING AND 1 AT NIGHT

REACTIONS (8)
  - CAESAREAN SECTION [None]
  - DRUG EXPOSURE DURING PREGNANCY [None]
  - DRUG EXPOSURE VIA BREAST MILK [None]
  - DYSPNOEA [None]
  - EXPIRED DRUG ADMINISTERED [None]
  - FATIGUE [None]
  - NORMAL NEWBORN [None]
  - URINARY TRACT INFECTION [None]
